FAERS Safety Report 21854680 (Version 1)
Quarter: 2023Q1

REPORT INFORMATION
  Report Type: Spontaneous
  Country: US (occurrence: US)
  Receive Date: 20230112
  Receipt Date: 20230112
  Transmission Date: 20230417
  Serious: No
  Sender: FDA-Public Use
  Company Number: US-PERRIGO-22US013821

PATIENT

DRUGS (2)
  1. IBUPROFEN [Suspect]
     Active Substance: IBUPROFEN
     Indication: Product used for unknown indication
     Dosage: UNKNOWN, UNKNOWN
     Route: 048
     Dates: start: 20221017, end: 20221017
  2. HOMEOPATHICS [Suspect]
     Active Substance: HOMEOPATHICS
     Indication: Product used for unknown indication
     Dosage: UNKNOWN, SINGLE
     Route: 048
     Dates: start: 20221017, end: 20221017

REACTIONS (2)
  - Pyrexia [Unknown]
  - Expired product administered [Unknown]

NARRATIVE: CASE EVENT DATE: 20221017
